FAERS Safety Report 15832658 (Version 1)
Quarter: 2019Q1

REPORT INFORMATION
  Report Type: Spontaneous
  Country: FR (occurrence: FR)
  Receive Date: 20190116
  Receipt Date: 20190116
  Transmission Date: 20190417
  Serious: Yes (Death, Hospitalization, Other)
  Sender: FDA-Public Use
  Company Number: FR-AUROBINDO-AUR-APL-2019-000093

PATIENT
  Age: 80 Year
  Sex: Male
  Weight: 81 kg

DRUGS (5)
  1. OXALIPLATIN. [Suspect]
     Active Substance: OXALIPLATIN
     Indication: INTESTINAL ADENOCARCINOMA
     Dosage: 165 MILLIGRAM, CYCLICAL
     Route: 042
     Dates: start: 20170907, end: 20171102
  2. ELIQUIS [Concomitant]
     Active Substance: APIXABAN
     Indication: ATRIAL FIBRILLATION
     Dosage: 2 DOSAGE FORM, DAILY
     Route: 048
  3. BISOCE [Concomitant]
     Active Substance: BISOPROLOL
     Indication: CARDIAC FAILURE
     Dosage: 1 DOSAGE FORM, DAILY
     Route: 048
  4. FLUOROURACILE [Suspect]
     Active Substance: FLUOROURACIL
     Indication: INTESTINAL ADENOCARCINOMA
     Dosage: 3800 MILLIGRAM, CYCLICAL
     Route: 042
     Dates: start: 20170907, end: 20171102
  5. MICARDIS [Concomitant]
     Active Substance: TELMISARTAN
     Indication: HYPERTENSION
     Dosage: 1 DOSAGE FORM, DAILY
     Route: 048
     Dates: start: 20171203

REACTIONS (1)
  - Pneumonitis chemical [Fatal]

NARRATIVE: CASE EVENT DATE: 20171123
